FAERS Safety Report 9040050 (Version 1)
Quarter: 2013Q1

REPORT INFORMATION
  Report Type: Report from Study
  Country: US (occurrence: US)
  Receive Date: 20130130
  Receipt Date: 20130130
  Transmission Date: 20140127
  Serious: No
  Sender: FDA-Public Use
  Company Number: US-ABBOTT-12P-163-0952307-00

PATIENT
  Age: 40 Year
  Sex: Female

DRUGS (7)
  1. HUMIRA 40 MG/0.8 ML PEN [Suspect]
     Indication: CROHN^S DISEASE
     Dosage: DOSE ON 30 JUN 2012
     Dates: start: 201206
  2. 6-MP [Concomitant]
     Indication: CROHN^S DISEASE
     Dosage: 50 MG DAILY
  3. CELEXA [Concomitant]
     Indication: ANXIETY
     Dosage: 25MG DAILY
  4. VITAMIN D [Concomitant]
     Indication: VITAMIN SUPPLEMENTATION
     Dosage: MONTHLY
  5. MULTIPLE VITAMINS [Concomitant]
     Indication: VITAMIN SUPPLEMENTATION
     Dosage: DAILY
  6. TYLENOL [Concomitant]
     Indication: PAIN
  7. IMODIUM [Concomitant]
     Indication: DIARRHOEA

REACTIONS (1)
  - Injection site pain [Recovered/Resolved]
